FAERS Safety Report 20101675 (Version 2)
Quarter: 2021Q4

REPORT INFORMATION
  Report Type: Spontaneous
  Country: US (occurrence: US)
  Receive Date: 20211123
  Receipt Date: 20211213
  Transmission Date: 20220304
  Serious: Yes (Other)
  Sender: FDA-Public Use
  Company Number: US-JOURNEY MEDICAL CORPORATION-2021JNY00045

PATIENT
  Sex: Male
  Weight: 63.492 kg

DRUGS (1)
  1. QBREXZA [Suspect]
     Active Substance: GLYCOPYRRONIUM TOSYLATE
     Indication: Hyperhidrosis
     Dosage: 1X/DAY TO UNDERARM AFTER A SHOWER (AT NIGHT)
     Route: 061
     Dates: start: 202104, end: 20211118

REACTIONS (8)
  - Urinary retention [Recovering/Resolving]
  - Vision blurred [Recovering/Resolving]
  - Vomiting [Recovered/Resolved]
  - Pyrexia [Recovered/Resolved]
  - Dysuria [Recovering/Resolving]
  - Bladder dilatation [Recovering/Resolving]
  - Urinary hesitation [Recovering/Resolving]
  - Constipation [Recovering/Resolving]

NARRATIVE: CASE EVENT DATE: 20210101
